FAERS Safety Report 7445648-5 (Version None)
Quarter: 2011Q2

REPORT INFORMATION
  Report Type: 
  Country: None (occurrence: None)
  Receive Date: 20110429
  Receipt Date: 20110428
  Transmission Date: 20111010
  Serious: Yes (Death)
  Sender: FDA-Public Use
  Company Number: IT-ROCHE-773966

PATIENT
  Sex: Male

DRUGS (5)
  1. BRONCOVALEAS [Concomitant]
     Route: 045
  2. METHYLPREDNISOLONE [Concomitant]
     Route: 042
  3. ROCEPHIN [Suspect]
     Dosage: DAILY.
     Route: 042
     Dates: start: 20110421, end: 20110421
  4. REPAGLINIDE [Concomitant]
     Route: 048
  5. PRONTINAL [Concomitant]
     Route: 045

REACTIONS (2)
  - RENAL FAILURE ACUTE [None]
  - RESPIRATORY FAILURE [None]
